FAERS Safety Report 26012033 (Version 1)
Quarter: 2025Q4

REPORT INFORMATION
  Report Type: Spontaneous
  Country: US (occurrence: None)
  Receive Date: 20251107
  Receipt Date: 20251107
  Transmission Date: 20260117
  Serious: Yes (Hospitalization)
  Sender: FDA-CTU
  Company Number: None

PATIENT
  Sex: Male

DRUGS (1)
  1. VYALEV [Suspect]
     Active Substance: FOSCARBIDOPA\FOSLEVODOPA
     Indication: Parkinson^s disease
     Dosage: OTHER STRENGTH : 0.23;?FREQUENCY : DAILY;?
     Route: 058
     Dates: start: 20250719

REACTIONS (6)
  - Infusion site swelling [None]
  - Infusion site erythema [None]
  - Infusion site irritation [None]
  - Infusion site nodule [None]
  - Infusion site infection [None]
  - Cellulitis [None]
